FAERS Safety Report 8318198-1 (Version None)
Quarter: 2012Q2

REPORT INFORMATION
  Report Type: 
  Country: None (occurrence: None)
  Receive Date: 20120425
  Receipt Date: 20120411
  Transmission Date: 20120825
  Serious: Yes (Other)
  Sender: FDA-Public Use
  Company Number: 2012MA003564

PATIENT
  Age: 48 Year
  Sex: Female
  Weight: 70 kg

DRUGS (10)
  1. CYCLOPHOSPHAMIDE [Concomitant]
  2. DOXORUBICIN HCL [Concomitant]
  3. PACLITAXEL [Suspect]
     Dosage: 315 MG;IV
     Route: 042
     Dates: start: 20110524, end: 20110705
  4. GRANISETRON [Suspect]
     Dosage: 1 MG;PO
     Route: 048
  5. PEGFILGRASTIM (PEGFILGRASTIM) [Suspect]
     Dosage: 6 MG;SQ
     Route: 058
  6. DEXAMETHASONE [Suspect]
     Dosage: 20 MG;IV
     Route: 042
  7. DOMPERIDONE (DOMPERIDONE) [Suspect]
     Dosage: 20 MG;PO
     Route: 048
  8. RANITIDINE [Suspect]
     Dosage: 50 MG;IV
     Route: 042
  9. CHLORPHENIRAMINE TAB [Suspect]
     Dosage: 10 MG;IV
     Route: 042
  10. DOCUSATE SODIUM [Concomitant]

REACTIONS (5)
  - DYSPNOEA [None]
  - SENSATION OF PRESSURE [None]
  - OBSTRUCTIVE AIRWAYS DISORDER [None]
  - CHEST PAIN [None]
  - FATIGUE [None]
